FAERS Safety Report 6290848-3 (Version None)
Quarter: 2009Q3

REPORT INFORMATION
  Report Type: 
  Country: None (occurrence: None)
  Receive Date: 20090730
  Receipt Date: 20090720
  Transmission Date: 20100115
  Serious: Yes (Hospitalization)
  Sender: FDA-Public Use
  Company Number: GB-ELI_LILLY_AND_COMPANY-GB200907004049

PATIENT
  Sex: Female

DRUGS (3)
  1. HUMALOG [Suspect]
  2. LANTUS [Concomitant]
     Dosage: 30 IU, UNK
     Route: 058
  3. LANTUS [Concomitant]
     Dosage: UNK, UNKNOWN

REACTIONS (4)
  - ABDOMINAL PAIN [None]
  - DIABETIC KETOACIDOSIS [None]
  - PRODUCT QUALITY ISSUE [None]
  - TREATMENT NONCOMPLIANCE [None]
